FAERS Safety Report 11441530 (Version 1)
Quarter: 2015Q3

REPORT INFORMATION
  Report Type: Spontaneous
  Country: CA (occurrence: CA)
  Receive Date: 20150901
  Receipt Date: 20150901
  Transmission Date: 20151125
  Serious: Yes (Death)
  Sender: FDA-Public Use
  Company Number: CA-PFIZER INC-2015275828

PATIENT
  Age: 9 Month
  Sex: Male

DRUGS (4)
  1. CYCLOPHOSPHAMIDE. [Suspect]
     Active Substance: CYCLOPHOSPHAMIDE
     Indication: NEUROBLASTOMA
     Dosage: CYCLIC (28 DAYS WITH 10 DAYS REST IN BETWEEN CYCLES)
     Route: 042
  2. ADRIAMYCIN [Suspect]
     Active Substance: DOXORUBICIN HYDROCHLORIDE
     Indication: NEUROBLASTOMA
     Dosage: CYCLIC (28 DAYS WITH 10 DAYS REST IN BETWEEN CYCLES)
     Route: 042
  3. CISPLATIN. [Suspect]
     Active Substance: CISPLATIN
     Indication: NEUROBLASTOMA
     Dosage: CYCLIC (28 DAYS WITH 10 DAYS REST IN BETWEEN CYCLES)
     Route: 042
  4. TENIPOSIDE. [Suspect]
     Active Substance: TENIPOSIDE
     Indication: NEUROBLASTOMA
     Dosage: CYCLIC (28 DAYS WITH 10 DAYS REST IN BETWEEN CYCLES)
     Route: 042

REACTIONS (1)
  - Pulmonary veno-occlusive disease [Fatal]
